FAERS Safety Report 8002034-7 (Version None)
Quarter: 2011Q4

REPORT INFORMATION
  Report Type: 
  Country: None (occurrence: None)
  Receive Date: 20111222
  Receipt Date: 20111219
  Transmission Date: 20120403
  Serious: Yes (Hospitalization)
  Sender: FDA-Public Use
  Company Number: US-ABBOTT-11P-163-0858156-00

PATIENT
  Age: 31 Year
  Sex: Female

DRUGS (9)
  1. IRON [Concomitant]
     Indication: ANAEMIA
  2. LEXAPRO [Concomitant]
     Indication: BIPOLAR DISORDER
     Dates: start: 20070101, end: 20091001
  3. MULTI-VITAMINS [Concomitant]
     Indication: PRODUCT USED FOR UNKNOWN INDICATION
  4. KLONOPIN [Concomitant]
     Indication: ANXIETY
     Dosage: NOT REPORTED.
     Dates: start: 20090101
  5. FOLIC ACID [Concomitant]
     Indication: PRODUCT USED FOR UNKNOWN INDICATION
  6. CLARITIN [Concomitant]
     Indication: SEASONAL ALLERGY
  7. HUMIRA [Suspect]
     Indication: PSORIATIC ARTHROPATHY
     Route: 058
     Dates: start: 20090901, end: 20091001
  8. LEXAPRO [Concomitant]
     Dosage: NOT REPORTED.
     Dates: start: 20090101
  9. KLONOPIN [Concomitant]
     Indication: BIPOLAR DISORDER
     Dates: start: 20070101, end: 20091001

REACTIONS (7)
  - GESTATIONAL DIABETES [None]
  - PSORIASIS [None]
  - ARTHRITIS [None]
  - CAESAREAN SECTION [None]
  - TYPE 2 DIABETES MELLITUS [None]
  - AMNIOTIC FLUID VOLUME DECREASED [None]
  - GESTATIONAL HYPERTENSION [None]
